FAERS Safety Report 8327054-4 (Version None)
Quarter: 2012Q2

REPORT INFORMATION
  Report Type: 
  Country: None (occurrence: None)
  Receive Date: 20120501
  Receipt Date: 20111216
  Transmission Date: 20120825
  Serious: No
  Sender: FDA-Public Use
  Company Number: US-SANOFI-AVENTIS-2011SA083126

PATIENT
  Age: 70 Year
  Sex: Male

DRUGS (5)
  1. LANTUS [Concomitant]
     Dosage: DOSE:64 UNIT(S)
     Dates: start: 20060101
  2. APIDRA [Suspect]
     Dosage: DOSAGE MENTIONED AS 16-18 UNITS, PRODUCT START DATE : ABOUT 3 MONTHS AGO
     Route: 058
     Dates: start: 20110901, end: 20111201
  3. APIDRA [Suspect]
     Dosage: DOSAGE MENTIONED AS 16-18 UNITS AND REDUCED OVER THE PAST TWO DAYS
     Route: 058
     Dates: start: 20111201
  4. SOLOSTAR [Suspect]
     Dosage: PRODUCT START DATE MENTIONED AS ABOUT 3 MONTHS AGO
     Dates: start: 20110901, end: 20111201
  5. SOLOSTAR [Suspect]
     Dates: start: 20111201

REACTIONS (2)
  - BURNING SENSATION [None]
  - NAUSEA [None]
